FAERS Safety Report 9059841 (Version 2)
Quarter: 2013Q1

REPORT INFORMATION
  Report Type: Report from Study
  Country: CA (occurrence: CA)
  Receive Date: 20130212
  Receipt Date: 20130326
  Transmission Date: 20140127
  Serious: Yes (Other)
  Sender: FDA-Public Use
  Company Number: CA-JNJFOC-20130202222

PATIENT
  Age: 25 None
  Sex: Male
  Weight: 66.8 kg

DRUGS (1)
  1. REMICADE [Suspect]
     Indication: RHEUMATOID ARTHRITIS
     Route: 042
     Dates: start: 20050802

REACTIONS (3)
  - Meniscus removal [Unknown]
  - Joint effusion [Unknown]
  - Oedema [Not Recovered/Not Resolved]
